FAERS Safety Report 4384649-0 (Version None)
Quarter: 2004Q2

REPORT INFORMATION
  Report Type: 
  Country: None (occurrence: None)
  Receive Date: 20040625
  Receipt Date: 20040521
  Transmission Date: 20050107
  Serious: No
  Sender: FDA-Public Use
  Company Number: US-BRISTOL-MYERS SQUIBB COMPANY-12593216

PATIENT
  Age: 47 Year
  Sex: Male
  Weight: 95 kg

DRUGS (2)
  1. SINEMET [Suspect]
     Indication: PARKINSON'S DISEASE
     Dosage: DOSAGE: 25MG/100MG 1/2 A TABLET TWICE DAILY, THEN INCREASE TO 1 TABLET 3 TIMES DAILY
     Route: 048
     Dates: start: 20040506
  2. PHENERGAN [Concomitant]
     Route: 061

REACTIONS (1)
  - NAUSEA [None]
